FAERS Safety Report 23387028 (Version 3)
Quarter: 2024Q4

REPORT INFORMATION
  Report Type: Spontaneous
  Country: AT (occurrence: AT)
  Receive Date: 20240110
  Receipt Date: 20241230
  Transmission Date: 20250115
  Serious: Yes (Hospitalization, Other)
  Sender: SANDOZ
  Company Number: AT-BRISTOL-MYERS SQUIBB COMPANY-2023-001131

PATIENT
  Age: 81 Year
  Sex: Female

DRUGS (26)
  1. DEXAMETHASONE [Suspect]
     Active Substance: DEXAMETHASONE
     Dosage: 10 MG
     Route: 048
     Dates: start: 20200909, end: 20200909
  2. DEXAMETHASONE [Suspect]
     Active Substance: DEXAMETHASONE
     Dosage: 16 MG, QW
     Route: 048
     Dates: start: 20200921, end: 20230515
  3. DEXAMETHASONE [Suspect]
     Active Substance: DEXAMETHASONE
     Indication: Plasma cell myeloma
     Dosage: 16 MG, QW
     Route: 048
     Dates: start: 20200814, end: 20200908
  4. DEXAMETHASONE [Suspect]
     Active Substance: DEXAMETHASONE
     Dosage: UNK MG
     Route: 065
     Dates: start: 20200909, end: 20200920
  5. DEXAMETHASONE [Suspect]
     Active Substance: DEXAMETHASONE
     Dosage: UNK MG
     Route: 065
     Dates: start: 20201014, end: 20201125
  6. REVLIMID [Suspect]
     Active Substance: LENALIDOMIDE
     Indication: Plasma cell myeloma
     Dosage: 10 MG, QD
     Route: 048
     Dates: start: 20200815, end: 20200824
  7. REVLIMID [Suspect]
     Active Substance: LENALIDOMIDE
     Dosage: 10 MG, QD
     Route: 048
     Dates: start: 20200909, end: 20200909
  8. REVLIMID [Suspect]
     Active Substance: LENALIDOMIDE
     Dosage: 10 MG, QD
     Route: 048
     Dates: start: 20200921, end: 20201011
  9. REVLIMID [Suspect]
     Active Substance: LENALIDOMIDE
     Dosage: 10 MG, QD
     Route: 048
     Dates: start: 20201102, end: 20201122
  10. REVLIMID [Suspect]
     Active Substance: LENALIDOMIDE
     Dosage: 7.5 MG, QD
     Route: 048
     Dates: start: 20220815, end: 20230515
  11. REVLIMID [Suspect]
     Active Substance: LENALIDOMIDE
     Dosage: THE DOSE WAS NOT ADMINISTERED DUE TO RADIATION THERAPY
     Route: 065
     Dates: start: 20200825, end: 20200908
  12. REVLIMID [Suspect]
     Active Substance: LENALIDOMIDE
     Dosage: UNK MG
     Route: 065
     Dates: start: 20200910, end: 20200920
  13. REVLIMID [Suspect]
     Active Substance: LENALIDOMIDE
     Dosage: UNK MG
     Route: 065
     Dates: start: 20201012, end: 20201013
  14. REVLIMID [Suspect]
     Active Substance: LENALIDOMIDE
     Dosage: UNK MG
     Route: 065
     Dates: start: 20201014, end: 20201101
  15. REVLIMID [Suspect]
     Active Substance: LENALIDOMIDE
     Dosage: UNK MG
     Route: 065
     Dates: start: 20201123, end: 20201125
  16. CIPRALEX [Concomitant]
     Active Substance: ESCITALOPRAM OXALATE
     Indication: Product used for unknown indication
     Dosage: 10 MG, QD
     Route: 065
  17. DRONABINOL [Concomitant]
     Active Substance: DRONABINOL
     Indication: Product used for unknown indication
     Dosage: 10 MG, QD
     Route: 048
     Dates: start: 20200921, end: 20201011
  18. EUTHYROX [Concomitant]
     Active Substance: LEVOTHYROXINE SODIUM
     Indication: Product used for unknown indication
     Dosage: 16 MG
     Route: 048
     Dates: start: 20200921, end: 20201013
  19. LAFENE [Concomitant]
     Dosage: 10 MG, QD
     Route: 048
     Dates: start: 20200815, end: 20200824
  20. LAFENE [Concomitant]
     Indication: Product used for unknown indication
     Dosage: 750 MG
     Route: 062
  21. MAXICALC [Concomitant]
     Indication: Product used for unknown indication
     Dosage: 16 MG
     Route: 048
     Dates: start: 20200814, end: 20200908
  22. PANTOPRAZOLE SODIUM [Concomitant]
     Active Substance: PANTOPRAZOLE SODIUM
     Indication: Product used for unknown indication
     Dosage: 50 UG
     Route: 065
  23. PANTOPRAZOLE SODIUM [Concomitant]
     Active Substance: PANTOPRAZOLE SODIUM
     Indication: Product used for unknown indication
     Dosage: 40 MG
     Route: 048
  24. ASPIRIN [Concomitant]
     Active Substance: ASPIRIN
     Indication: Product used for unknown indication
     Dosage: 100 MG
     Route: 048
  25. TRAZODONE HYDROCHLORIDE [Concomitant]
     Active Substance: TRAZODONE HYDROCHLORIDE
     Indication: Product used for unknown indication
     Dosage: 3-3-4 GTTUNK
     Route: 065
  26. VALACYCLOVIR HYDROCHLORIDE [Concomitant]
     Active Substance: VALACYCLOVIR HYDROCHLORIDE
     Indication: Product used for unknown indication
     Dosage: 500 MG
     Route: 048

REACTIONS (2)
  - Anaemia [Recovered/Resolved]
  - Neutropenia [Recovered/Resolved]

NARRATIVE: CASE EVENT DATE: 20221107
